FAERS Safety Report 7543434-9 (Version None)
Quarter: 2011Q2

REPORT INFORMATION
  Report Type: 
  Country: None (occurrence: None)
  Receive Date: 20110613
  Receipt Date: 20110606
  Transmission Date: 20111010
  Serious: Yes (Other)
  Sender: FDA-Public Use
  Company Number: ZA-JNJFOC-20110512821

PATIENT
  Sex: Male

DRUGS (1)
  1. LISTERINE TOTAL CARE [Suspect]
     Indication: DENTAL DISORDER PROPHYLAXIS
     Dosage: DAILY FOR A MONTH
     Route: 048
     Dates: start: 20110401

REACTIONS (1)
  - TOOTH DISORDER [None]
